FAERS Safety Report 16702429 (Version 1)
Quarter: 2019Q3

REPORT INFORMATION
  Report Type: Spontaneous
  Country: US (occurrence: US)
  Receive Date: 20190813
  Receipt Date: 20190813
  Transmission Date: 20191004
  Serious: Yes (Other)
  Sender: FDA-Public Use
  Company Number: None

PATIENT
  Age: 83 Year
  Sex: Female
  Weight: 62.1 kg

DRUGS (1)
  1. PHENYTOIN SODIUM 100 MG [Suspect]
     Active Substance: PHENYTOIN SODIUM
     Indication: SEIZURE
     Dosage: ?          QUANTITY:1 CAPSULE(S);?
     Route: 048

REACTIONS (7)
  - Nausea [None]
  - Product substitution issue [None]
  - Feeling abnormal [None]
  - Feeling of body temperature change [None]
  - Toxicity to various agents [None]
  - Anticonvulsant drug level increased [None]
  - Decreased appetite [None]

NARRATIVE: CASE EVENT DATE: 20190803
